FAERS Safety Report 9691050 (Version 4)
Quarter: 2015Q2

REPORT INFORMATION
  Report Type: Report from Study
  Country: US (occurrence: US)
  Receive Date: 20131115
  Receipt Date: 20150414
  Transmission Date: 20150821
  Serious: Yes (Hospitalization)
  Sender: FDA-Public Use
  Company Number: US-ACTELION-A-US2013-90974

PATIENT
  Age: 56 Year
  Sex: Female

DRUGS (7)
  1. DILTIAZEM [Concomitant]
     Active Substance: DILTIAZEM
  2. SILDENAFIL. [Concomitant]
     Active Substance: SILDENAFIL
  3. TYVASO [Concomitant]
     Active Substance: TREPROSTINIL
  4. RIOCIGUAT [Concomitant]
     Active Substance: RIOCIGUAT
  5. COUMADIN [Concomitant]
     Active Substance: WARFARIN SODIUM
  6. TRACLEER [Suspect]
     Active Substance: BOSENTAN\BOSENTAN MONOHYDRATE
     Indication: PULMONARY HYPERTENSION
     Dosage: UNK
     Route: 048
  7. DIGOXIN. [Concomitant]
     Active Substance: DIGOXIN

REACTIONS (5)
  - Heart rate increased [Unknown]
  - Hot flush [Unknown]
  - Cardiac failure congestive [Unknown]
  - Thrombosis [Unknown]
  - Anticoagulation drug level below therapeutic [Unknown]
